FAERS Safety Report 9465143 (Version 2)
Quarter: 2013Q4

REPORT INFORMATION
  Report Type: Report from Study
  Country: DE (occurrence: DE)
  Receive Date: 20130819
  Receipt Date: 20131023
  Transmission Date: 20140711
  Serious: Yes (Death, Other)
  Sender: FDA-Public Use
  Company Number: DE-CELGENEUS-062-21880-13080843

PATIENT
  Sex: 0

DRUGS (4)
  1. REVLIMID [Suspect]
     Indication: AMYLOIDOSIS
     Dosage: 10 MILLIGRAM
     Route: 048
  2. MELPHALAN [Suspect]
     Indication: AMYLOIDOSIS
     Dosage: .15 MILLIGRAM/KILOGRAM
     Route: 048
  3. DEXAMETHASONE [Suspect]
     Indication: AMYLOIDOSIS
     Dosage: 20 MILLIGRAM
     Route: 048
  4. ANTIBIOTICS [Concomitant]
     Indication: PROPHYLAXIS
     Route: 065

REACTIONS (9)
  - Death [Fatal]
  - Autonomic neuropathy [Unknown]
  - Cardiac failure [Unknown]
  - Haematotoxicity [Unknown]
  - Thrombosis [Unknown]
  - Adverse event [Unknown]
  - Infection [Unknown]
  - Amyloidosis [Unknown]
  - Renal impairment [Unknown]
